FAERS Safety Report 13998346 (Version 8)
Quarter: 2019Q2

REPORT INFORMATION
  Report Type: Report from Study
  Country: US (occurrence: US)
  Receive Date: 20170921
  Receipt Date: 20190503
  Transmission Date: 20190711
  Serious: Yes (Other)
  Sender: FDA-Public Use
  Company Number: US-JAZZ-2017-US-012116

PATIENT
  Sex: Male

DRUGS (3)
  1. XYREM [Suspect]
     Active Substance: SODIUM OXYBATE
     Indication: NARCOLEPSY
     Dosage: 2 G, FIRST DOSE
     Route: 048
  2. PERCOCET [Suspect]
     Active Substance: ACETAMINOPHEN\OXYCODONE HYDROCHLORIDE
     Indication: PRODUCT USED FOR UNKNOWN INDICATION
  3. XYREM [Suspect]
     Active Substance: SODIUM OXYBATE
     Indication: CATAPLEXY
     Dosage: 1 G, SECOND DOSE
     Route: 048

REACTIONS (11)
  - Neck injury [Unknown]
  - Post procedural infection [Not Recovered/Not Resolved]
  - Drug abuse [Unknown]
  - Anxiety [Not Recovered/Not Resolved]
  - Rotator cuff syndrome [Not Recovered/Not Resolved]
  - Hepatic cirrhosis [Unknown]
  - Snoring [Unknown]
  - Hepatitis C [Recovering/Resolving]
  - Attention deficit/hyperactivity disorder [Not Recovered/Not Resolved]
  - Surgery [Unknown]
  - Withdrawal syndrome [Unknown]
